FAERS Safety Report 25370230 (Version 1)
Quarter: 2025Q2

REPORT INFORMATION
  Report Type: Spontaneous
  Country: TW (occurrence: None)
  Receive Date: 20250528
  Receipt Date: 20250528
  Transmission Date: 20250717
  Serious: Yes (Other)
  Sender: INCYTE
  Company Number: TW-002147023-NVSC2025TW084129

PATIENT
  Age: 2 Year

DRUGS (4)
  1. RUXOLITINIB [Suspect]
     Active Substance: RUXOLITINIB
     Indication: Acute graft versus host disease
     Dosage: 2.5 MG, BID
     Route: 065
  2. BUDESONIDE [Concomitant]
     Active Substance: BUDESONIDE
     Indication: Acute graft versus host disease
     Route: 065
  3. CYCLOSPORINE [Concomitant]
     Active Substance: CYCLOSPORINE
     Indication: Acute graft versus host disease
     Route: 065
  4. ETANERCEPT [Concomitant]
     Active Substance: ETANERCEPT
     Indication: Acute graft versus host disease
     Route: 065

REACTIONS (3)
  - Cytomegalovirus infection [Unknown]
  - Neutropenia [Unknown]
  - Urinary tract infection [Unknown]
